FAERS Safety Report 26034343 (Version 1)
Quarter: 2025Q4

REPORT INFORMATION
  Report Type: Spontaneous
  Country: US (occurrence: US)
  Receive Date: 20251112
  Receipt Date: 20251112
  Transmission Date: 20260118
  Serious: Yes (Hospitalization)
  Sender: AMGEN
  Company Number: US-AMGEN-USASP2025220476

PATIENT
  Age: 72 Year
  Sex: Male

DRUGS (5)
  1. RITUXIMAB [Suspect]
     Active Substance: RITUXIMAB
     Indication: Cold type haemolytic anaemia
     Dosage: UNK, Q4WK (FOUR WEEKLY ADMINISTRATIONS OF RITUXIMAB)
     Route: 065
  2. FOLATE SODIUM [Concomitant]
     Active Substance: FOLATE SODIUM
  3. DEXAMETHASONE [Concomitant]
     Active Substance: DEXAMETHASONE
     Indication: Cold type haemolytic anaemia
     Dosage: 20 MILLIGRAM, Q8WK
     Route: 048
  4. ERYTHROPOIETIN [Concomitant]
     Active Substance: ERYTHROPOIETIN
     Indication: Cold type haemolytic anaemia
  5. IBRUTINIB [Concomitant]
     Active Substance: IBRUTINIB
     Indication: Cold type haemolytic anaemia
     Dosage: UNK
     Dates: start: 202306

REACTIONS (8)
  - Portal vein thrombosis [Unknown]
  - Biliary sepsis [Unknown]
  - Cholangitis [Unknown]
  - Infection [Unknown]
  - Haemoglobin decreased [Unknown]
  - Transaminases increased [Unknown]
  - Therapeutic product effect incomplete [Unknown]
  - Off label use [Unknown]
